FAERS Safety Report 5338318-0 (Version None)
Quarter: 2007Q2

REPORT INFORMATION
  Report Type: 
  Country: None (occurrence: None)
  Receive Date: 20070405
  Receipt Date: 20061113
  Transmission Date: 20071010
  Serious: No
  Sender: FDA-Public Use
  Company Number: US200611002275

PATIENT
  Sex: Female

DRUGS (3)
  1. CYMBALTA [Suspect]
     Indication: ORAL DISCOMFORT
     Dosage: 30 MG, 2/D, ORAL
     Route: 048
     Dates: start: 20061108, end: 20061101
  2. METFORMIN HCL [Concomitant]
  3. LESCOL [Concomitant]

REACTIONS (3)
  - ORAL DISCOMFORT [None]
  - PHARYNGOLARYNGEAL PAIN [None]
  - THROAT IRRITATION [None]
